FAERS Safety Report 8913354 (Version 1)
Quarter: 2012Q4

REPORT INFORMATION
  Report Type: Spontaneous
  Country: IT (occurrence: None)
  Receive Date: 20121113
  Receipt Date: 20121113
  Transmission Date: 20130627
  Serious: Yes (Hospitalization)
  Sender: FDA-Public Use
  Company Number: DSA_60829_2012

PATIENT
  Age: 46 Year
  Sex: Female

DRUGS (5)
  1. ELONTRIL [Suspect]
     Indication: DEPRESSION
     Route: 048
     Dates: start: 20100101, end: 20121029
  2. RELPAX [Suspect]
     Indication: MIGRAINE
     Dates: start: 20121029, end: 20121029
  3. PAROXETINE HYDROCHLORIDE [Concomitant]
  4. CARDIOASPIRIN [Concomitant]
  5. INEGY [Concomitant]

REACTIONS (9)
  - Migraine [None]
  - Convulsion [None]
  - Electrocardiogram ST segment abnormal [None]
  - Full blood count abnormal [None]
  - Troponin increased [None]
  - Drug screen positive [None]
  - Pain [None]
  - Confusional state [None]
  - Vertigo [None]
